FAERS Safety Report 8057016-6 (Version None)
Quarter: 2012Q1

REPORT INFORMATION
  Report Type: 
  Country: None (occurrence: None)
  Receive Date: 20120119
  Receipt Date: 20120117
  Transmission Date: 20120608
  Serious: No
  Sender: FDA-Public Use
  Company Number: US-B.I. PHARMACEUTICALS,INC./RIDGEFIELD-2012-BP-00971BP

PATIENT
  Age: 74 Year
  Sex: Male

DRUGS (3)
  1. COLCRYS [Concomitant]
  2. METOPROLOL TARTRATE [Concomitant]
  3. PRADAXA [Suspect]
     Indication: ATRIAL FIBRILLATION
     Dosage: 300 MG
     Route: 048
     Dates: start: 20111101, end: 20111101

REACTIONS (2)
  - DYSPNOEA [None]
  - CHEST PAIN [None]
